FAERS Safety Report 12560988 (Version 2)
Quarter: 2016Q4

REPORT INFORMATION
  Report Type: Report from Study
  Country: AU (occurrence: AU)
  Receive Date: 20160715
  Receipt Date: 20161114
  Transmission Date: 20170207
  Serious: Yes (Life-Threatening, Hospitalization, Disabling)
  Sender: FDA-Public Use
  Company Number: AU-ASTELLAS-2016US026860

PATIENT
  Age: 78 Year
  Sex: Male

DRUGS (2)
  1. GOSERELIN [Concomitant]
     Active Substance: GOSERELIN
     Indication: PRODUCT USED FOR UNKNOWN INDICATION
     Dosage: 10.8 MG, UNKNOWN FREQ.
     Route: 058
     Dates: start: 20150624
  2. ENZALUTAMIDE [Suspect]
     Active Substance: ENZALUTAMIDE
     Indication: PROSTATE CANCER METASTATIC
     Route: 048
     Dates: start: 20150624, end: 20160711

REACTIONS (1)
  - Depressed level of consciousness [Recovered/Resolved with Sequelae]

NARRATIVE: CASE EVENT DATE: 20160709
